FAERS Safety Report 13892840 (Version 1)
Quarter: 2017Q3

REPORT INFORMATION
  Report Type: Spontaneous
  Country: US (occurrence: US)
  Receive Date: 20170822
  Receipt Date: 20170822
  Transmission Date: 20171127
  Serious: No
  Sender: FDA-Public Use
  Company Number: US-ROCHE-1418753

PATIENT
  Sex: Female

DRUGS (3)
  1. TAXOTERE [Suspect]
     Active Substance: DOCETAXEL
     Indication: BREAST CANCER STAGE II
     Route: 065
     Dates: start: 2009, end: 20140529
  2. PERJETA [Suspect]
     Active Substance: PERTUZUMAB
     Indication: BREAST CANCER METASTATIC
     Route: 065
     Dates: start: 2014, end: 20140529
  3. HERCEPTIN [Suspect]
     Active Substance: TRASTUZUMAB
     Indication: BREAST CANCER STAGE II
     Route: 065
     Dates: start: 2009, end: 20140529

REACTIONS (10)
  - Migraine [Unknown]
  - Stomatitis [Unknown]
  - Diarrhoea [Unknown]
  - Diabetes mellitus [Recovered/Resolved]
  - Breast cancer metastatic [Unknown]
  - Clostridium difficile infection [Unknown]
  - Nausea [Unknown]
  - Abdominal pain upper [Unknown]
  - Rash [Unknown]
  - Alopecia [Unknown]

NARRATIVE: CASE EVENT DATE: 2009
